FAERS Safety Report 8911950 (Version 1)
Quarter: 2012Q4

REPORT INFORMATION
  Report Type: 
  Country: DE (occurrence: DE)
  Receive Date: 20121116
  Receipt Date: 20121116
  Transmission Date: 20130627
  Serious: Yes (Other)
  Sender: FDA-Public Use
  Company Number: DE-PFIZER INC-2012282678

PATIENT
  Age: 52 Year
  Sex: Male
  Weight: 132 kg

DRUGS (1)
  1. FASTJEKT [Suspect]
     Dosage: UNK
     Dates: start: 20121023, end: 20121023

REACTIONS (6)
  - Accidental exposure to product [Recovered/Resolved]
  - Expired drug administered [Unknown]
  - Peripheral ischaemia [Recovered/Resolved]
  - Injection site infection [Recovered/Resolved]
  - Restlessness [Recovered/Resolved]
  - Tremor [Recovered/Resolved]
